FAERS Safety Report 17589831 (Version 2)
Quarter: 2021Q2

REPORT INFORMATION
  Report Type: Spontaneous
  Country: US (occurrence: US)
  Receive Date: 20200327
  Receipt Date: 20210413
  Transmission Date: 20210716
  Serious: No
  Sender: FDA-Public Use
  Company Number: US-ALLERGAN-2000840US

PATIENT
  Sex: Female

DRUGS (1)
  1. LATISSE [Suspect]
     Active Substance: BIMATOPROST
     Indication: GROWTH OF EYELASHES
     Dosage: ACTUAL: 1?2 GTTS AT NIGHT
     Route: 061
     Dates: start: 201912, end: 202001

REACTIONS (5)
  - Madarosis [Not Recovered/Not Resolved]
  - Blepharal pigmentation [Not Recovered/Not Resolved]
  - Incorrect dose administered [Unknown]
  - Erythema of eyelid [Recovered/Resolved]
  - Eyelash changes [Not Recovered/Not Resolved]
